FAERS Safety Report 4968846-9 (Version None)
Quarter: 2006Q2

REPORT INFORMATION
  Report Type: 
  Country: None (occurrence: None)
  Receive Date: 20060411
  Receipt Date: 20060405
  Transmission Date: 20061013
  Serious: Yes (Death, Hospitalization)
  Sender: FDA-Public Use
  Company Number: PHEH2006US04495

PATIENT
  Age: 86 Year
  Sex: Female

DRUGS (6)
  1. LANOXIN [Concomitant]
  2. CELEBREX [Concomitant]
  3. BETAPACE [Concomitant]
  4. ELAVIL [Concomitant]
  5. LORCET-HD [Concomitant]
  6. EXJADE [Suspect]
     Indication: BLOOD IRON INCREASED
     Dosage: 1000 MG, QD
     Dates: start: 20060222

REACTIONS (1)
  - DEATH [None]
